FAERS Safety Report 6411091-0 (Version None)
Quarter: 2009Q4

REPORT INFORMATION
  Report Type: 
  Country: None (occurrence: None)
  Receive Date: 20091020
  Receipt Date: 20091009
  Transmission Date: 20100525
  Serious: Yes (Hospitalization)
  Sender: FDA-Public Use
  Company Number: TPA2009A03133

PATIENT
  Age: 53 Year
  Sex: Male

DRUGS (1)
  1. PIOGLITAZONE HCL [Suspect]
     Indication: RHEUMATOID ARTHRITIS
     Dosage: PER ORAL
     Route: 048
     Dates: end: 20090910

REACTIONS (3)
  - AGITATION [None]
  - BLOOD PRESSURE INCREASED [None]
  - PALPITATIONS [None]
